FAERS Safety Report 5749686-X (Version None)
Quarter: 2008Q2

REPORT INFORMATION
  Report Type: 
  Country: None (occurrence: None)
  Receive Date: 20080521
  Receipt Date: 20080521
  Transmission Date: 20081010
  Serious: Yes (Hospitalization)
  Sender: FDA-Public Use
  Company Number: None

PATIENT
  Age: 1 Year
  Sex: Female
  Weight: 7 kg

DRUGS (5)
  1. CEFTRIAXONE [Suspect]
     Dosage: 500 MG ONCE IV
     Route: 042
     Dates: start: 20080202
  2. L-CARNITINE [Concomitant]
  3. VENTOLIN [Concomitant]
  4. PULMICORT [Concomitant]
  5. SOD. BICARB [Concomitant]

REACTIONS (8)
  - CHEST DISCOMFORT [None]
  - DEHYDRATION [None]
  - EYE SWELLING [None]
  - HYPOTENSION [None]
  - LOWER RESPIRATORY TRACT INFECTION [None]
  - METABOLIC ACIDOSIS [None]
  - TACHYCARDIA [None]
  - URTICARIA [None]
